FAERS Safety Report 8805916 (Version 1)
Quarter: 2012Q4

REPORT INFORMATION
  Report Type: Spontaneous
  Country: GB (occurrence: None)
  Receive Date: 20120918
  Receipt Date: 20120918
  Transmission Date: 20130627
  Serious: Yes (Other)
  Sender: FDA-Public Use
  Company Number: GER/UKI/12/0025799

PATIENT
  Age: 38 Year
  Sex: Female
  Weight: 50 kg

DRUGS (1)
  1. CIPROFLOXACIN [Suspect]
     Indication: PYELONEPHRITIS
     Dates: start: 20120320, end: 20120402

REACTIONS (24)
  - Abnormal behaviour [None]
  - Diarrhoea [None]
  - Disorientation [None]
  - Dizziness [None]
  - Feeling hot [None]
  - Pyrexia [None]
  - Feeling abnormal [None]
  - Decreased appetite [None]
  - Hallucination [None]
  - Headache [None]
  - Heart rate increased [None]
  - Hot flush [None]
  - Paraesthesia [None]
  - Mental impairment [None]
  - Hypokinesia [None]
  - Nightmare [None]
  - Paranoia [None]
  - Pulse abnormal [None]
  - Abdominal pain upper [None]
  - Photosensitivity reaction [None]
  - Tremor [None]
  - Balance disorder [None]
  - Vomiting [None]
  - Asthenia [None]
